FAERS Safety Report 5164189-1 (Version None)
Quarter: 2006Q4

REPORT INFORMATION
  Report Type: 
  Country: None (occurrence: None)
  Receive Date: 20060918
  Receipt Date: 20050829
  Transmission Date: 20070319
  Serious: Yes (Other)
  Sender: FDA-Public Use
  Company Number: US-JNJFOC-20050900074

PATIENT
  Age: 36 Year
  Sex: Male

DRUGS (1)
  1. TOPAMAX [Suspect]
     Indication: CONVULSION
     Dosage: 75 MG, 2 IN 1 DAY, ORAL
     Route: 048
     Dates: start: 20030101, end: 20050801

REACTIONS (1)
  - DRUG WITHDRAWAL CONVULSIONS [None]
